FAERS Safety Report 18109257 (Version 1)
Quarter: 2020Q3

REPORT INFORMATION
  Report Type: Spontaneous
  Country: CA (occurrence: CA)
  Receive Date: 20200804
  Receipt Date: 20200804
  Transmission Date: 20201103
  Serious: Yes (Congenital Anomaly, Other)
  Sender: FDA-Public Use
  Company Number: CA-TEVA-2020-CA-1808584

PATIENT
  Age: 45 Year
  Sex: Male
  Weight: 105 kg

DRUGS (2)
  1. METHOTREXATE. [Suspect]
     Active Substance: METHOTREXATE
     Indication: ARTHRITIS
     Route: 065
  2. REMICADE [Concomitant]
     Active Substance: INFLIXIMAB

REACTIONS (5)
  - Nausea [Unknown]
  - Abdominal distension [Unknown]
  - Anastomotic ulcer [Unknown]
  - Change of bowel habit [Unknown]
  - Intestinal malrotation [Unknown]
